FAERS Safety Report 26055922 (Version 1)
Quarter: 2025Q4

REPORT INFORMATION
  Report Type: Other
  Country: CN (occurrence: CN)
  Receive Date: 20251118
  Receipt Date: 20251118
  Transmission Date: 20260117
  Serious: Yes (Hospitalization, Other)
  Sender: QILU ANTIBIOTICS PHARMACEUTICAL
  Company Number: CN-QILU ANTIBIOTICS PHARMACEUTICAL CO. LTD-QLA-000169-2025

PATIENT
  Age: 57 Year
  Sex: Female

DRUGS (2)
  1. CEFTRIAXONE [Suspect]
     Active Substance: CEFTRIAXONE
     Indication: Infection
     Dosage: 2 G PER DAY
     Route: 041
     Dates: start: 20251031, end: 20251103
  2. OLANZAPINE [Suspect]
     Active Substance: OLANZAPINE
     Indication: Mental disorder
     Dosage: 5 MG PER DAY
     Route: 048
     Dates: start: 20251031, end: 20251103

REACTIONS (1)
  - Rhabdomyolysis [Recovering/Resolving]

NARRATIVE: CASE EVENT DATE: 20251102
